FAERS Safety Report 9866784 (Version 4)
Quarter: 2014Q1

REPORT INFORMATION
  Report Type: Spontaneous
  Country: GB (occurrence: GB)
  Receive Date: 20140204
  Receipt Date: 20140306
  Transmission Date: 20141002
  Serious: Yes (Other)
  Sender: FDA-Public Use
  Company Number: GB-ACCORD-021393

PATIENT
  Sex: Female

DRUGS (9)
  1. METHOTREXATE [Suspect]
     Indication: URTICARIA CHRONIC
  2. LORATADINE [Suspect]
     Indication: URTICARIA CHRONIC
  3. HYDROXYZINE [Suspect]
     Indication: URTICARIA CHRONIC
  4. PREDNISOLONE [Suspect]
     Indication: URTICARIA CHRONIC
     Dosage: 25-40 MG PER WEEK FOR 2 TO 3 WEEKS
  5. HYDROXYCHLOROQUINE [Suspect]
     Indication: URTICARIA CHRONIC
     Dosage: 200 MG/DAY AND SOMETIMES INCREASED TO 400 MG/DAY.
  6. DAPSONE [Suspect]
     Indication: URTICARIA CHRONIC
     Dosage: 50 MG, QW
  7. CICLOSPORIN [Suspect]
     Indication: URTICARIA CHRONIC
     Dosage: 2.5 MG/KG, UNK
  8. CETIRIZINE [Suspect]
     Indication: URTICARIA CHRONIC
  9. FEXOFENADINE [Suspect]
     Indication: URTICARIA CHRONIC

REACTIONS (7)
  - Angioedema [Not Recovered/Not Resolved]
  - Urticaria [Not Recovered/Not Resolved]
  - Asthma [Not Recovered/Not Resolved]
  - Blood pressure increased [Unknown]
  - Drug ineffective [Unknown]
  - Drug effect incomplete [Not Recovered/Not Resolved]
  - Off label use [Unknown]
